FAERS Safety Report 19510957 (Version 1)
Quarter: 2021Q3

REPORT INFORMATION
  Report Type: Other
  Country: FR (occurrence: FR)
  Receive Date: 20210709
  Receipt Date: 20210709
  Transmission Date: 20211014
  Serious: Yes (Other)
  Sender: FDA-Public Use
  Company Number: FR-AJANTA PHARMA USA INC.-2113638

PATIENT
  Age: 26 Year
  Sex: Female

DRUGS (2)
  1. VERAPAMIL [Concomitant]
     Active Substance: VERAPAMIL HYDROCHLORIDE
  2. ALMOTRIPTAN. [Suspect]
     Active Substance: ALMOTRIPTAN
     Indication: MIGRAINE WITH AURA

REACTIONS (4)
  - Oligohydramnios [Unknown]
  - Arterial injury [Unknown]
  - Overdose [Unknown]
  - Exposure during pregnancy [Recovered/Resolved]
